FAERS Safety Report 9146895 (Version 1)
Quarter: 2013Q1

REPORT INFORMATION
  Report Type: Spontaneous
  Country: US (occurrence: None)
  Receive Date: 20130228
  Receipt Date: 20130228
  Transmission Date: 20140127
  Serious: Yes (Life-Threatening)
  Sender: FDA-Public Use
  Company Number: None

PATIENT
  Sex: Female
  Weight: 114.5 kg

DRUGS (2)
  1. VERAPAMIL [Suspect]
     Indication: TACHYCARDIA
     Dosage: 240MG 1 DAILY ORAL
     Route: 048
     Dates: end: 1980
  2. CARDIZEM [Suspect]
     Dosage: 240MG 1 DAILY ORAL
     Route: 048

REACTIONS (1)
  - Anaphylactoid reaction [None]
